FAERS Safety Report 23793518 (Version 1)
Quarter: 2024Q2

REPORT INFORMATION
  Report Type: Spontaneous
  Country: US (occurrence: US)
  Receive Date: 20240429
  Receipt Date: 20240429
  Transmission Date: 20240716
  Serious: Yes (Hospitalization, Other)
  Sender: FDA-Public Use
  Company Number: US-CSLP-12804882095-V13684120-2

PATIENT
  Age: 57 Year
  Sex: Female

DRUGS (7)
  1. ANTICOAGULANT SODIUM CITRATE [Suspect]
     Active Substance: SODIUM CITRATE
     Indication: Anticoagulant therapy
     Route: 050
     Dates: start: 20240417, end: 20240417
  2. turmeric gummies [Concomitant]
     Indication: Product used for unknown indication
     Dosage: GUMMIES
  3. All day allergy relief [Concomitant]
     Indication: Seasonal allergy
     Dosage: OTC
  4. MAGNESIUM [Concomitant]
     Active Substance: MAGNESIUM
     Indication: Product used for unknown indication
  5. LISINOPRIL [Concomitant]
     Active Substance: LISINOPRIL
     Indication: Hypertension
  6. VITAMIN D3 [Concomitant]
     Active Substance: CHOLECALCIFEROL
     Indication: Product used for unknown indication
  7. CLONIDINE [Concomitant]
     Active Substance: CLONIDINE
     Indication: Hypertension

REACTIONS (10)
  - Loss of consciousness [Unknown]
  - Vomiting [Unknown]
  - Dyspnoea [Unknown]
  - Fall [Unknown]
  - Nausea [Unknown]
  - Chest pain [Unknown]
  - Dizziness [Unknown]
  - Chest discomfort [Unknown]
  - Mydriasis [Unknown]
  - Dehydration [Unknown]

NARRATIVE: CASE EVENT DATE: 20240417
